FAERS Safety Report 6525690-9 (Version None)
Quarter: 2009Q4

REPORT INFORMATION
  Report Type: 
  Country: None (occurrence: None)
  Receive Date: 20091228
  Receipt Date: 20091210
  Transmission Date: 20100525
  Serious: Yes (Other)
  Sender: FDA-Public Use
  Company Number: IDA-00308

PATIENT
  Age: 1 Year
  Sex: Female

DRUGS (2)
  1. PROPRANOLOL [Suspect]
     Indication: VENTRICULAR TACHYCARDIA
     Dosage: 25 MG TID
  2. FLECAINIDE ACETATE [Concomitant]

REACTIONS (2)
  - HYPOGLYCAEMIC UNCONSCIOUSNESS [None]
  - KETOSIS [None]
